FAERS Safety Report 7672307-6 (Version None)
Quarter: 2011Q3

REPORT INFORMATION
  Report Type: 
  Country: None (occurrence: None)
  Receive Date: 20110804
  Receipt Date: 20110804
  Transmission Date: 20111222
  Serious: Yes (Hospitalization)
  Sender: FDA-Public Use
  Company Number: 2011000687

PATIENT
  Age: 43 Year
  Sex: Female

DRUGS (3)
  1. TARCEVA [Suspect]
  2. TARCEVA [Suspect]
     Indication: LUNG CARCINOMA CELL TYPE UNSPECIFIED STAGE 0
     Dosage: 150 MG, UID/QD, ORAL
     Route: 048
     Dates: start: 20110111
  3. TARCEVA [Suspect]
     Indication: LUNG CARCINOMA CELL TYPE UNSPECIFIED STAGE 0
     Dosage: 150 MG, UID/QD, ORAL
     Route: 048
     Dates: start: 20110111

REACTIONS (5)
  - PULMONARY OEDEMA [None]
  - DISEASE PROGRESSION [None]
  - NAIL INFECTION [None]
  - PAIN [None]
  - DERMATITIS ACNEIFORM [None]
